FAERS Safety Report 15708222 (Version 3)
Quarter: 2019Q2

REPORT INFORMATION
  Report Type: Spontaneous
  Country: US (occurrence: US)
  Receive Date: 20181211
  Receipt Date: 20190507
  Transmission Date: 20190711
  Serious: No
  Sender: FDA-Public Use
  Company Number: US-PFIZER INC-2018504894

PATIENT
  Age: 46 Year
  Sex: Female
  Weight: 70.3 kg

DRUGS (1)
  1. XELJANZ [Suspect]
     Active Substance: TOFACITINIB CITRATE
     Indication: RHEUMATOID ARTHRITIS
     Dosage: 5 MG, 2X/DAY
     Route: 048
     Dates: start: 20181105

REACTIONS (8)
  - Diarrhoea [Unknown]
  - Weight decreased [Unknown]
  - Headache [Unknown]
  - Nausea [Unknown]
  - Blood cholesterol increased [Unknown]
  - Nasal congestion [Unknown]
  - Decreased appetite [Unknown]
  - Rhinorrhoea [Unknown]

NARRATIVE: CASE EVENT DATE: 2018
